FAERS Safety Report 7463679-6 (Version None)
Quarter: 2011Q2

REPORT INFORMATION
  Report Type: 
  Country: None (occurrence: None)
  Receive Date: 20110506
  Receipt Date: 20110425
  Transmission Date: 20111010
  Serious: No
  Sender: FDA-Public Use
  Company Number: B0716049A

PATIENT
  Age: 0 Year
  Sex: Female

DRUGS (1)
  1. RELENZA [Suspect]
     Route: 055
     Dates: start: 20110425, end: 20110425

REACTIONS (2)
  - ACCIDENTAL EXPOSURE [None]
  - NO ADVERSE EVENT [None]
